FAERS Safety Report 7331201-0 (Version None)
Quarter: 2011Q1

REPORT INFORMATION
  Report Type: 
  Country: None (occurrence: None)
  Receive Date: 20110304
  Receipt Date: 20110302
  Transmission Date: 20110831
  Serious: Yes (Other)
  Sender: FDA-Public Use
  Company Number: CN-PFIZER INC-2011046300

PATIENT

DRUGS (2)
  1. HALOPERIDOL [Concomitant]
     Dosage: UNK
  2. ZELDOX [Suspect]
     Dosage: UNK
     Route: 048
     Dates: start: 20100101

REACTIONS (2)
  - CATAPLEXY [None]
  - ELECTROCARDIOGRAM QT PROLONGED [None]
